FAERS Safety Report 18571370 (Version 2)
Quarter: 2021Q1

REPORT INFORMATION
  Report Type: Report from Study
  Country: CL (occurrence: CL)
  Receive Date: 20201202
  Receipt Date: 20210325
  Transmission Date: 20210419
  Serious: Yes (Other)
  Sender: FDA-Public Use
  Company Number: CL-TAKEDA-2020TUS046959

PATIENT
  Age: 8 Year
  Sex: Male
  Weight: 23 kg

DRUGS (2)
  1. IDURSULFASE [Suspect]
     Active Substance: IDURSULFASE
     Indication: MUCOPOLYSACCHARIDOSIS II
     Dosage: 20 MILLIGRAM PER MILLILITRE, 1/WEEK
     Route: 042
  2. IDURSULFASE [Suspect]
     Active Substance: IDURSULFASE
     Dosage: 0.5 MILLIGRAM/KILOGRAM,1/WEEK
     Route: 042

REACTIONS (4)
  - Gait disturbance [Recovered/Resolved]
  - Subdural haematoma [Recovered/Resolved]
  - Fall [Recovered/Resolved]
  - Feeling abnormal [Recovered/Resolved]

NARRATIVE: CASE EVENT DATE: 20201017
